FAERS Safety Report 19888488 (Version 1)
Quarter: 2021Q3

REPORT INFORMATION
  Report Type: Spontaneous
  Country: US (occurrence: US)
  Receive Date: 20210927
  Receipt Date: 20210927
  Transmission Date: 20211014
  Serious: Yes (Other)
  Sender: FDA-Public Use
  Company Number: None

PATIENT
  Sex: Female

DRUGS (2)
  1. LUMIGAN [Suspect]
     Active Substance: BIMATOPROST
  2. TRAVATAN Z [Suspect]
     Active Substance: TRAVOPROST

REACTIONS (5)
  - Skin exfoliation [None]
  - Pruritus [None]
  - Erythema [None]
  - Pain [None]
  - Drug ineffective [None]
